FAERS Safety Report 4398333-0 (Version None)
Quarter: 2004Q3

REPORT INFORMATION
  Report Type: 
  Country: None (occurrence: None)
  Receive Date: 20040713
  Receipt Date: 20040630
  Transmission Date: 20050211
  Serious: Yes (Hospitalization)
  Sender: FDA-Public Use
  Company Number: 2004039600

PATIENT
  Age: 83 Year
  Sex: Male

DRUGS (7)
  1. LIPITOR [Suspect]
     Indication: HYPERCHOLESTEROLAEMIA
     Dosage: 5 MG (1 IN 1 D), ORAL
     Route: 048
     Dates: start: 20021219, end: 20040510
  2. METOPROLOL TARTRATE [Concomitant]
  3. TEPRENONE [Concomitant]
  4. NIZATIDINE [Concomitant]
  5. ETIZOLAM [Concomitant]
  6. MAG-LAX (MAGNESIUM HYDROXIDE, PARAFFIN, LIQUID) [Concomitant]
  7. LACTOBACILLUS BIFIDUS, LYOPHILIZED [Concomitant]

REACTIONS (8)
  - DEHYDRATION [None]
  - DIABETES MELLITUS [None]
  - DIABETIC KETOACIDOSIS [None]
  - DYSGEUSIA [None]
  - GLYCOSYLATED HAEMOGLOBIN DECREASED [None]
  - PANCREATIC ATROPHY [None]
  - POSITRON EMISSION TOMOGRAM ABNORMAL [None]
  - PROCEDURAL COMPLICATION [None]
